FAERS Safety Report 18463459 (Version 1)
Quarter: 2020Q4

REPORT INFORMATION
  Report Type: Spontaneous
  Country: US (occurrence: US)
  Receive Date: 20201104
  Receipt Date: 20201104
  Transmission Date: 20210114
  Serious: Yes (Death, Hospitalization)
  Sender: FDA-Public Use
  Company Number: US-OSMOTICA_PHARMACEUTICAL_US_LLC-POI0573202000541

PATIENT
  Age: 77 Year
  Sex: Male

DRUGS (3)
  1. OSMOLEX ER [Suspect]
     Active Substance: AMANTADINE
     Indication: PARKINSON^S DISEASE
     Dates: start: 20190613, end: 20191114
  2. OSMOLEX ER [Suspect]
     Active Substance: AMANTADINE
     Dates: start: 20191115, end: 20200617
  3. OSMOLEX ER [Suspect]
     Active Substance: AMANTADINE
     Dates: start: 20200618

REACTIONS (3)
  - Wound infection [Unknown]
  - Osteomyelitis [Recovered/Resolved]
  - Death [Fatal]

NARRATIVE: CASE EVENT DATE: 20200810
